FAERS Safety Report 6954918-6 (Version None)
Quarter: 2010Q3

REPORT INFORMATION
  Report Type: 
  Country: None (occurrence: None)
  Receive Date: 20100830
  Receipt Date: 20100816
  Transmission Date: 20110219
  Serious: Yes (Other)
  Sender: FDA-Public Use
  Company Number: PHHY2010ES54076

PATIENT
  Age: 37 Year
  Sex: Female

DRUGS (1)
  1. ZOMETA [Suspect]
     Indication: METASTASES TO BONE
     Dosage: 4 MG
     Route: 042
     Dates: start: 20090605, end: 20100706

REACTIONS (4)
  - BONE DISORDER [None]
  - GINGIVAL PAIN [None]
  - GINGIVAL ULCERATION [None]
  - OSTEONECROSIS [None]
